FAERS Safety Report 7003067-X (Version None)
Quarter: 2010Q3

REPORT INFORMATION
  Report Type: 
  Country: None (occurrence: None)
  Receive Date: 20100920
  Receipt Date: 20100322
  Transmission Date: 20110219
  Serious: No
  Sender: FDA-Public Use
  Company Number: US-ASTRAZENECA-2010SE12584

PATIENT
  Age: 18511 Day
  Sex: Male
  Weight: 116.1 kg

DRUGS (6)
  1. SEROQUEL XR [Suspect]
     Indication: BIPOLAR DISORDER
     Route: 048
  2. SEROQUEL XR [Suspect]
     Route: 048
     Dates: start: 20100315, end: 20100319
  3. SEROQUEL XR [Suspect]
     Route: 048
     Dates: start: 20100319
  4. SERTRALINE HYDROCHLORIDE [Concomitant]
  5. METFORMIN [Concomitant]
  6. ZOLOFT [Concomitant]
     Route: 048

REACTIONS (2)
  - DISTURBANCE IN ATTENTION [None]
  - DYSKINESIA [None]
